FAERS Safety Report 11226384 (Version 2)
Quarter: 2015Q3

REPORT INFORMATION
  Report Type: Spontaneous
  Country: US (occurrence: US)
  Receive Date: 20150629
  Receipt Date: 20150716
  Transmission Date: 20151125
  Serious: Yes (Other)
  Sender: FDA-Public Use
  Company Number: US-GLAXOSMITHKLINE INC.-US2015GSK089133

PATIENT
  Age: 60 Year
  Sex: Male

DRUGS (2)
  1. PROMACTA [Suspect]
     Active Substance: ELTROMBOPAG OLAMINE
     Indication: THROMBOCYTOPENIA
     Dosage: UNK
     Dates: start: 20150310
  2. PROMACTA [Suspect]
     Active Substance: ELTROMBOPAG OLAMINE
     Indication: PLATELET COUNT DECREASED
     Dosage: UNK
     Dates: start: 201503

REACTIONS (5)
  - Hypoaesthesia [Unknown]
  - Procedural complication [Unknown]
  - Pain in extremity [Unknown]
  - Coronary artery bypass [Unknown]
  - Nerve injury [Unknown]

NARRATIVE: CASE EVENT DATE: 20150422
